FAERS Safety Report 23772566 (Version 1)
Quarter: 2024Q2

REPORT INFORMATION
  Report Type: Report from Study
  Country: US (occurrence: None)
  Receive Date: 20240423
  Receipt Date: 20240423
  Transmission Date: 20240716
  Serious: Yes (Other)
  Sender: FDA-Public Use
  Company Number: 2024A092930

PATIENT
  Sex: Female

DRUGS (3)
  1. LYNPARZA [Suspect]
     Active Substance: OLAPARIB
     Indication: Ovarian cancer
     Route: 048
     Dates: start: 20200929
  2. METAMUCIL [Concomitant]
     Active Substance: PLANTAGO SEED
  3. PSYLLIUM HUSK [Concomitant]
     Active Substance: PSYLLIUM HUSK
     Dosage: 500 MILLIGRAMS

REACTIONS (7)
  - Obstruction [Unknown]
  - Hernia [Unknown]
  - Blood pressure abnormal [Recovering/Resolving]
  - Sleep disorder [Unknown]
  - Diarrhoea [Unknown]
  - Asthenia [Unknown]
  - Product dose omission issue [Unknown]
